FAERS Safety Report 20448275 (Version 1)
Quarter: 2022Q1

REPORT INFORMATION
  Report Type: Report from Study
  Country: ES (occurrence: ES)
  Receive Date: 20220209
  Receipt Date: 20220209
  Transmission Date: 20220424
  Serious: Yes (Other)
  Sender: FDA-Public Use
  Company Number: ES-SA-SAC20220203001204

PATIENT
  Sex: Female
  Weight: 83 kg

DRUGS (2)
  1. INSULIN GLARGINE [Suspect]
     Active Substance: INSULIN GLARGINE
     Indication: Type 2 diabetes mellitus
     Dosage: 44 IU, QD
     Route: 058
  2. LINAGLIPTIN [Concomitant]
     Active Substance: LINAGLIPTIN
     Indication: Type 2 diabetes mellitus
     Dosage: DOSAGE/UNIT/FREQ/AMOUNT : 0-1-0
     Route: 048

REACTIONS (3)
  - Cataract [Not Recovered/Not Resolved]
  - Hyperglycaemia [Recovered/Resolved]
  - Hypoglycaemia [Recovering/Resolving]
